FAERS Safety Report 8988235 (Version 1)
Quarter: 2012Q4

REPORT INFORMATION
  Report Type: 
  Country: BR (occurrence: BR)
  Receive Date: 20121227
  Receipt Date: 20121227
  Transmission Date: 20130627
  Serious: Yes (Other)
  Sender: FDA-Public Use
  Company Number: BR-PFIZER INC-2012321268

PATIENT
  Sex: Female

DRUGS (3)
  1. PRISTIQ [Suspect]
     Dosage: 100 mg, UNK
  2. TIBOLONE [Concomitant]
     Indication: MENOPAUSE
  3. WELLBUTRIN XL [Concomitant]
     Indication: SMOKING CESSATION THERAPY
     Dosage: 300 mg, UNK

REACTIONS (2)
  - Depression [Unknown]
  - Malaise [Unknown]
